FAERS Safety Report 9789465 (Version 1)
Quarter: 2013Q4

REPORT INFORMATION
  Report Type: Spontaneous
  Country: FR (occurrence: FR)
  Receive Date: 20131231
  Receipt Date: 20131231
  Transmission Date: 20140711
  Serious: Yes (Hospitalization)
  Sender: FDA-Public Use
  Company Number: FR-ROCHE-1326772

PATIENT
  Age: 81 Year
  Sex: Male

DRUGS (5)
  1. XELODA [Suspect]
     Indication: PANCREATIC CARCINOMA
     Route: 048
     Dates: start: 20131021, end: 20131103
  2. PREVISCAN (FRANCE) [Interacting]
     Indication: PANCREATIC CARCINOMA
     Route: 048
     Dates: start: 201307, end: 20130707
  3. CREON [Concomitant]
     Route: 048
  4. AVODART [Concomitant]
     Route: 048
  5. JOSIR [Concomitant]
     Route: 048

REACTIONS (1)
  - International normalised ratio increased [Recovered/Resolved]
